FAERS Safety Report 7730702-0 (Version None)
Quarter: 2011Q3

REPORT INFORMATION
  Report Type: 
  Country: None (occurrence: None)
  Receive Date: 20110906
  Receipt Date: 20110826
  Transmission Date: 20111222
  Serious: Yes (Other)
  Sender: FDA-Public Use
  Company Number: US-GLAXOSMITHKLINE-A0942520A

PATIENT
  Sex: Female

DRUGS (2)
  1. ADVAIR DISKUS 100/50 [Suspect]
     Indication: CHRONIC OBSTRUCTIVE PULMONARY DISEASE
     Route: 055
  2. NO CONCURRENT MEDICATION [Concomitant]

REACTIONS (8)
  - LIVE BIRTH [None]
  - FALL [None]
  - DYSPNOEA [None]
  - OVERDOSE [None]
  - VISUAL ACUITY REDUCED [None]
  - CHEST DISCOMFORT [None]
  - CHEST PAIN [None]
  - MATERNAL EXPOSURE DURING PREGNANCY [None]
